FAERS Safety Report 21474154 (Version 1)
Quarter: 2022Q4

REPORT INFORMATION
  Report Type: Spontaneous
  Country: US (occurrence: US)
  Receive Date: 20221018
  Receipt Date: 20221018
  Transmission Date: 20230112
  Serious: Yes (Other)
  Sender: FDA-Public Use
  Company Number: US-BAXTER-2022BAX021877

PATIENT
  Age: 71 Year
  Sex: Male

DRUGS (1)
  1. METOPROLOL TARTRATE [Suspect]
     Active Substance: METOPROLOL TARTRATE
     Dosage: 25 MG TWICE DAILY ABOUT 4 DAYS PRIOR TO PRESENTATION IN THE EMERGENCY ROOM
     Route: 065

REACTIONS (3)
  - Hyperkalaemia [Unknown]
  - Renal failure [Recovering/Resolving]
  - Bradycardia [Recovering/Resolving]
